FAERS Safety Report 5929634-X (Version None)
Quarter: 2008Q3

REPORT INFORMATION
  Report Type: 
  Country: None (occurrence: None)
  Receive Date: 20080922
  Receipt Date: 20080115
  Transmission Date: 20090109
  Serious: No
  Sender: FDA-Public Use
  Company Number: T200800044

PATIENT
  Age: 24 Year
  Sex: Female

DRUGS (1)
  1. HYDROCODONE BITARTRATE + ACETAMINOPHEN [Suspect]
     Indication: MUSCULOSKELETAL PAIN
     Dosage: 2 TABLETS, ORAL
     Route: 048

REACTIONS (2)
  - NAUSEA [None]
  - WRONG DRUG ADMINISTERED [None]
